FAERS Safety Report 5117708-5 (Version None)
Quarter: 2006Q3

REPORT INFORMATION
  Report Type: 
  Country: None (occurrence: None)
  Receive Date: 20060929
  Receipt Date: 20060807
  Transmission Date: 20061208
  Serious: Yes (Other)
  Sender: FDA-Public Use
  Company Number: US-BRISTOL-MYERS SQUIBB COMPANY-13467626

PATIENT
  Age: 65 Year
  Sex: Male
  Weight: 89 kg

DRUGS (7)
  1. SPRYCEL [Suspect]
     Indication: CHRONIC MYELOID LEUKAEMIA
     Route: 048
     Dates: start: 20060721, end: 20060725
  2. ASPIRIN [Concomitant]
     Dates: end: 20060725
  3. QUINAPRIL [Concomitant]
     Route: 048
  4. TOPROL-XL [Concomitant]
     Route: 048
  5. LIPITOR [Concomitant]
     Route: 048
  6. COLACE [Concomitant]
     Route: 048
  7. PROTONIX [Concomitant]

REACTIONS (1)
  - CEREBRAL HAEMORRHAGE [None]
